FAERS Safety Report 15130878 (Version 1)
Quarter: 2018Q3

REPORT INFORMATION
  Report Type: Spontaneous
  Country: US (occurrence: US)
  Receive Date: 20180711
  Receipt Date: 20180711
  Transmission Date: 20181010
  Serious: Yes (Other)
  Sender: FDA-Public Use
  Company Number: US-ELI_LILLY_AND_COMPANY-US201807000582

PATIENT
  Sex: Female

DRUGS (1)
  1. FORTEO [Suspect]
     Active Substance: TERIPARATIDE
     Indication: PRODUCT USED FOR UNKNOWN INDICATION
     Dosage: UNK, UNKNOWN
     Route: 065
     Dates: start: 2006

REACTIONS (16)
  - Vascular injury [Recovering/Resolving]
  - Spinal column stenosis [Unknown]
  - Atrial fibrillation [Unknown]
  - Aortic aneurysm [Unknown]
  - Barrett^s oesophagus [Unknown]
  - Bone density decreased [Unknown]
  - Raynaud^s phenomenon [Unknown]
  - Vascular calcification [Unknown]
  - Vitamin D decreased [Unknown]
  - Vascular pseudoaneurysm [Unknown]
  - Swelling [Not Recovered/Not Resolved]
  - Hypotension [Unknown]
  - Gastrointestinal haemorrhage [Unknown]
  - Irritable bowel syndrome [Unknown]
  - Blood calcium decreased [Unknown]
  - Intervertebral disc degeneration [Unknown]
